FAERS Safety Report 9165208 (Version 1)
Quarter: 2013Q1

REPORT INFORMATION
  Report Type: Spontaneous
  Country: NZ (occurrence: None)
  Receive Date: 20130227
  Receipt Date: 20130227
  Transmission Date: 20140127
  Serious: Yes (Other)
  Sender: FDA-Public Use
  Company Number: VAL_01416_2013

PATIENT
  Age: 67 Year
  Sex: Female

DRUGS (4)
  1. METOPROLOL [Suspect]
     Indication: PRODUCT USED FOR UNKNOWN INDICATION
     Route: 048
  2. CLARATYNE [Concomitant]
  3. HEALTH E FATTY [Concomitant]
  4. CHOLECALCIFEROL [Concomitant]

REACTIONS (1)
  - Arrhythmia [None]
